FAERS Safety Report 13133208 (Version 2)
Quarter: 2017Q1

REPORT INFORMATION
  Report Type: Spontaneous
  Country: MX (occurrence: MX)
  Receive Date: 20170120
  Receipt Date: 20170123
  Transmission Date: 20170428
  Serious: Yes (Life-Threatening, Other)
  Sender: FDA-Public Use
  Company Number: PHHY2017MX007501

PATIENT
  Age: 57 Year
  Sex: Male
  Weight: 60 kg

DRUGS (2)
  1. TRILEPTAL [Suspect]
     Active Substance: OXCARBAZEPINE
     Indication: PETIT MAL EPILEPSY
     Dosage: 450 MG, UNK (1 AND HALF TABLET EVERY 12 HOURS AND AT 1 PM TOOK HALF TABLET MORE)
     Route: 048
     Dates: start: 1999
  2. TRILEPTAL [Suspect]
     Active Substance: OXCARBAZEPINE
     Dosage: 2 TABLETS EVERY 12 HOURS AND HALF TABLET AT 13:00 HS
     Route: 048
     Dates: end: 20170114

REACTIONS (6)
  - Insomnia [Unknown]
  - Muscle tightness [Unknown]
  - Petit mal epilepsy [Recovered/Resolved]
  - Loss of consciousness [Not Recovered/Not Resolved]
  - Road traffic accident [Unknown]
  - Petit mal epilepsy [Unknown]

NARRATIVE: CASE EVENT DATE: 1999
